FAERS Safety Report 25957285 (Version 1)
Quarter: 2025Q4

REPORT INFORMATION
  Report Type: Spontaneous
  Country: US (occurrence: US)
  Receive Date: 20251024
  Receipt Date: 20251024
  Transmission Date: 20260118
  Serious: No
  Sender: SEPTODONT
  Company Number: US-SEPTODONT-2025019747

PATIENT
  Age: 46 Year
  Sex: Female

DRUGS (3)
  1. SEPTOCAINE [Suspect]
     Active Substance: ARTICAINE HYDROCHLORIDE\EPINEPHRINE BITARTRATE
     Indication: Dental local anaesthesia
     Dosage: 4 CARPULES.
     Route: 004
     Dates: start: 20250613, end: 20250613
  2. Hurricane 20% Benzocaine [Concomitant]
     Indication: Product used for unknown indication
  3. Henry Schein 27Ga 30mm [Concomitant]
     Indication: Dental local anaesthesia

REACTIONS (1)
  - Drug ineffective [Unknown]

NARRATIVE: CASE EVENT DATE: 20250613
